FAERS Safety Report 9801971 (Version 1)
Quarter: 2014Q1

REPORT INFORMATION
  Report Type: Spontaneous
  Country: IT (occurrence: IT)
  Receive Date: 20140107
  Receipt Date: 20140107
  Transmission Date: 20141002
  Serious: Yes (Hospitalization, Other)
  Sender: FDA-Public Use
  Company Number: PHHY2014IT001037

PATIENT
  Age: 63 Year
  Sex: Female

DRUGS (5)
  1. OLANZAPINE [Suspect]
     Indication: DEPRESSION
     Dosage: 10 MG, UNK
  2. ARIPIPRAZOLE [Suspect]
     Indication: DEPRESSION
     Dosage: 5 MG, DAILY
  3. TRIAZOLAM [Concomitant]
     Dosage: 1 DF, (0.25 MG 1 CP EVERY NIGHT)
  4. ALPRAZOLAM [Concomitant]
     Dosage: 1 DF, (0.25 MG 1 CP EVERY MORNING)
  5. PAROXETINA [Concomitant]
     Dosage: 1 DF, (20 MG HALF CP AFTER LUNCH)

REACTIONS (12)
  - Neuroleptic malignant syndrome [Recovering/Resolving]
  - Dysarthria [Recovering/Resolving]
  - Hypokinesia [Recovering/Resolving]
  - Gait disturbance [Recovering/Resolving]
  - Musculoskeletal stiffness [Recovering/Resolving]
  - Bradykinesia [Recovering/Resolving]
  - Cogwheel rigidity [Recovering/Resolving]
  - Pyrexia [Recovering/Resolving]
  - Leukocytosis [Recovering/Resolving]
  - Mutism [Recovering/Resolving]
  - Blood creatine phosphokinase increased [Recovering/Resolving]
  - Drug interaction [Unknown]
